FAERS Safety Report 24300683 (Version 2)
Quarter: 2025Q1

REPORT INFORMATION
  Report Type: Spontaneous
  Country: US (occurrence: US)
  Receive Date: 20240910
  Receipt Date: 20250219
  Transmission Date: 20250408
  Serious: Yes (Other)
  Sender: NOVO NORDISK
  Company Number: US-NOVOPROD-1277709

PATIENT
  Sex: Male

DRUGS (1)
  1. NOVOLOG [Suspect]
     Active Substance: INSULIN ASPART
     Indication: Diabetes mellitus
     Route: 058
     Dates: start: 2014

REACTIONS (6)
  - Acute kidney injury [Unknown]
  - Blood phosphorus abnormal [Unknown]
  - Blood potassium abnormal [Unknown]
  - Dehydration [Unknown]
  - Diabetes mellitus inadequate control [Not Recovered/Not Resolved]
  - Product use complaint [Unknown]
